FAERS Safety Report 4267048-1 (Version None)
Quarter: 2004Q1

REPORT INFORMATION
  Report Type: 
  Country: None (occurrence: None)
  Receive Date: 20040108
  Receipt Date: 20031201
  Transmission Date: 20041129
  Serious: Yes (Hospitalization)
  Sender: FDA-Public Use
  Company Number: DK-BRISTOL-MYERS SQUIBB COMPANY-12445888

PATIENT
  Age: 59 Year
  Sex: Male
  Weight: 63 kg

DRUGS (2)
  1. CISPLATIN [Suspect]
     Indication: BLADDER CANCER
     Dates: start: 20031018, end: 20031018
  2. GEMCITABINE [Suspect]
     Indication: BLADDER CANCER
     Dates: start: 20031023, end: 20031023

REACTIONS (3)
  - EPISTAXIS [None]
  - HAEMORRHAGE [None]
  - PLATELET COUNT DECREASED [None]
